FAERS Safety Report 4940314-X (Version None)
Quarter: 2006Q1

REPORT INFORMATION
  Report Type: 
  Country: None (occurrence: None)
  Receive Date: 20060310
  Receipt Date: 20060216
  Transmission Date: 20060701
  Serious: Yes (Death, Life-Threatening, Hospitalization)
  Sender: FDA-Public Use
  Company Number: JP-MERCK-0602USA04912

PATIENT
  Age: 81 Year
  Sex: Female
  Weight: 48 kg

DRUGS (8)
  1. CLINORIL [Suspect]
     Indication: BACK PAIN
     Route: 048
     Dates: start: 20000101, end: 20060211
  2. ACTONEL [Suspect]
     Indication: OSTEOPOROSIS
     Route: 048
     Dates: start: 20020601, end: 20060211
  3. SOLON [Concomitant]
     Indication: PROPHYLAXIS AGAINST GASTROINTESTINAL ULCER
     Route: 048
     Dates: start: 20000101, end: 20060211
  4. ALFAROL [Concomitant]
     Indication: OSTEOPOROSIS
     Route: 048
     Dates: start: 20000101, end: 20060211
  5. CALCIUM ASPARTATE [Concomitant]
     Indication: OSTEOPOROSIS
     Route: 048
     Dates: start: 20000101, end: 20060211
  6. INDOMETHACIN [Concomitant]
     Indication: OSTEOPOROSIS
     Route: 061
  7. BLOPRESS [Concomitant]
     Indication: HYPERTENSION
     Route: 048
     Dates: start: 20040801, end: 20060211
  8. ATELEC [Concomitant]
     Indication: HYPERTENSION
     Route: 048
     Dates: start: 20040801, end: 20060211

REACTIONS (7)
  - DISSEMINATED INTRAVASCULAR COAGULATION [None]
  - GASTRIC MUCOSAL LESION [None]
  - GASTROINTESTINAL HAEMORRHAGE [None]
  - PLEURAL EFFUSION [None]
  - RENAL FAILURE ACUTE [None]
  - SHOCK HAEMORRHAGIC [None]
  - URINARY TRACT INFECTION [None]
